FAERS Safety Report 8480836 (Version 2)
Quarter: 2012Q4

REPORT INFORMATION
  Report Type: 
  Country: FR (occurrence: FR)
  Receive Date: 20120328
  Receipt Date: 20121231
  Transmission Date: 20130627
  Serious: Yes (Hospitalization)
  Sender: FDA-Public Use
  Company Number: FR-ABBOTT-12P-056-0916509-00

PATIENT
  Age: 46 Year
  Sex: Male

DRUGS (5)
  1. NORVIR [Suspect]
     Indication: HIV INFECTION
     Route: 048
  2. LEVITRA [Interacting]
     Indication: ERECTILE DYSFUNCTION
     Route: 048
     Dates: start: 20120131, end: 20120207
  3. PREZISTA [Concomitant]
     Indication: HIV INFECTION
     Route: 048
  4. MARAVIROC [Concomitant]
     Indication: HIV INFECTION
     Route: 048
  5. TRUVADA [Concomitant]
     Indication: HIV INFECTION
     Dosage: 200mg/245mg
     Route: 048

REACTIONS (5)
  - Scotoma [Recovered/Resolved]
  - Visual acuity reduced [Recovered/Resolved]
  - Metamorphopsia [Recovered/Resolved]
  - Vision blurred [Recovered/Resolved]
  - Drug interaction [Unknown]
